FAERS Safety Report 17750625 (Version 4)
Quarter: 2020Q4

REPORT INFORMATION
  Report Type: Report from Study
  Country: CN (occurrence: CN)
  Receive Date: 20200506
  Receipt Date: 20201231
  Transmission Date: 20210113
  Serious: Yes (Death, Life-Threatening, Hospitalization)
  Sender: FDA-Public Use
  Company Number: CN-ASTRAZENECA-2020SE39444

PATIENT
  Age: 24253 Day
  Sex: Female

DRUGS (14)
  1. OLAPARIB. [Suspect]
     Active Substance: OLAPARIB
     Indication: OVARIAN CANCER
     Route: 048
     Dates: start: 20200219, end: 20200219
  2. VITAMIN C TABLETS [Concomitant]
     Route: 048
     Dates: start: 20190327
  3. POLYFEROSE CAPSULES [Concomitant]
     Route: 048
     Dates: start: 20190909
  4. POLYFEROSE CAPSULES [Concomitant]
     Route: 048
     Dates: start: 20190223, end: 20190303
  5. AMLODIPINE BENZOATE [Concomitant]
     Active Substance: AMLODIPINE BENZOATE
     Route: 048
     Dates: start: 20200121
  6. OLAPARIB. [Suspect]
     Active Substance: OLAPARIB
     Indication: OVARIAN CANCER
     Route: 048
     Dates: start: 20200123, end: 20200123
  7. OLAPARIB. [Suspect]
     Active Substance: OLAPARIB
     Indication: OVARIAN CANCER
     Route: 048
     Dates: start: 20190918, end: 20190918
  8. OLAPARIB. [Suspect]
     Active Substance: OLAPARIB
     Indication: OVARIAN CANCER
     Route: 048
     Dates: start: 20190919, end: 20200122
  9. FUFANG HONGYIBUXUE KOUFUYE(TCM) [Concomitant]
     Route: 065
     Dates: start: 20200124
  10. OLAPARIB. [Suspect]
     Active Substance: OLAPARIB
     Indication: OVARIAN CANCER
     Route: 048
     Dates: start: 20200218, end: 20200218
  11. OLAPARIB. [Suspect]
     Active Substance: OLAPARIB
     Indication: OVARIAN CANCER
     Route: 048
     Dates: start: 20200220, end: 20200220
  12. OLAPARIB. [Suspect]
     Active Substance: OLAPARIB
     Indication: OVARIAN CANCER
     Route: 048
     Dates: start: 20181230, end: 20181230
  13. OLAPARIB. [Suspect]
     Active Substance: OLAPARIB
     Indication: OVARIAN CANCER
     Route: 048
     Dates: start: 20181231, end: 20190916
  14. POLYFEROSE CAPSULES [Concomitant]
     Route: 048
     Dates: start: 20190107, end: 20190207

REACTIONS (2)
  - Acute myeloid leukaemia [Fatal]
  - Small intestinal obstruction [Recovered/Resolved]

NARRATIVE: CASE EVENT DATE: 20200306
